FAERS Safety Report 13917438 (Version 4)
Quarter: 2021Q1

REPORT INFORMATION
  Report Type: Report from Study
  Country: US (occurrence: US)
  Receive Date: 20170829
  Receipt Date: 20210203
  Transmission Date: 20210419
  Serious: Yes (Death, Hospitalization)
  Sender: FDA-Public Use
  Company Number: US-CELGENEUS-USA-20170807288

PATIENT
  Age: 73 Year
  Sex: Female
  Weight: 63.5 kg

DRUGS (12)
  1. REVLIMID [Suspect]
     Active Substance: LENALIDOMIDE
     Dosage: 20 MILLIGRAMS
     Route: 048
     Dates: start: 20111215, end: 20120102
  2. REVLIMID [Suspect]
     Active Substance: LENALIDOMIDE
     Dosage: 10 MILLIGRAMS
     Route: 048
     Dates: start: 20120710, end: 20130131
  3. DEXAMETHASONE ORAL [Suspect]
     Active Substance: DEXAMETHASONE
     Indication: PLASMA CELL MYELOMA
     Dosage: 20 MILLIGRAM
     Route: 048
     Dates: start: 20170509
  4. REVLIMID [Suspect]
     Active Substance: LENALIDOMIDE
     Dosage: 5 MILLIGRAMS
     Route: 048
     Dates: start: 20130221, end: 20130304
  5. REVLIMID [Suspect]
     Active Substance: LENALIDOMIDE
     Dosage: 5 MILLIGRAMS
     Route: 048
     Dates: start: 20130327, end: 20130401
  6. REVLIMID [Suspect]
     Active Substance: LENALIDOMIDE
     Dosage: 5 MILLIGRAMS
     Route: 048
     Dates: start: 20130426, end: 20130515
  7. REVLIMID [Suspect]
     Active Substance: LENALIDOMIDE
     Dosage: 5 MILLIGRAMS, FOR 28DAYS
     Route: 048
     Dates: start: 20170426, end: 20170504
  8. THALOMID [Suspect]
     Active Substance: THALIDOMIDE
     Indication: PLASMA CELL MYELOMA
     Dosage: 200 MILLIGRAM
     Route: 048
     Dates: start: 20170514, end: 20170629
  9. DEXAMETHASONE ORAL [Suspect]
     Active Substance: DEXAMETHASONE
     Dosage: 20 MILLIGRAM
     Route: 048
     Dates: start: 20170628, end: 20170629
  10. REVLIMID [Suspect]
     Active Substance: LENALIDOMIDE
     Dosage: 5 MILLIGRAMS
     Route: 048
     Dates: start: 20170406, end: 20170425
  11. REVLIMID [Suspect]
     Active Substance: LENALIDOMIDE
     Indication: PLASMA CELL MYELOMA
     Dosage: 10 MILLIGRAMS
     Route: 048
     Dates: start: 20110720, end: 20111103
  12. REVLIMID [Suspect]
     Active Substance: LENALIDOMIDE
     Dosage: 15 MILLIGRAMS
     Route: 048
     Dates: start: 20111104, end: 20111214

REACTIONS (2)
  - Lung carcinoma cell type unspecified recurrent [Fatal]
  - Asthenia [Recovered/Resolved]

NARRATIVE: CASE EVENT DATE: 20170730
